FAERS Safety Report 8630991 (Version 2)
Quarter: 2012Q4

REPORT INFORMATION
  Report Type: 
  Country: GB (occurrence: GB)
  Receive Date: 20120622
  Receipt Date: 20121115
  Transmission Date: 20130627
  Serious: Yes (Hospitalization)
  Sender: FDA-Public Use
  Company Number: GB-ASTRAZENECA-2012SE39585

PATIENT
  Age: 37 Year
  Sex: Male

DRUGS (6)
  1. OMEPRAZOLE [Suspect]
     Indication: ABDOMINAL DISCOMFORT
     Dosage: 20 MG DAILY, DR REDDY^S
     Route: 048
     Dates: start: 20110427
  2. OMEPRAZOLE [Suspect]
     Indication: ABDOMINAL DISCOMFORT
     Route: 048
     Dates: start: 20110603, end: 201110
  3. DOXYCYCLINE [Concomitant]
     Dates: start: 20111114
  4. LAXIDO [Concomitant]
     Dates: start: 20111101
  5. QUETIAPINE [Concomitant]
  6. TRIMETHOPRIM [Concomitant]
     Dates: start: 20111114

REACTIONS (19)
  - Abdominal distension [Unknown]
  - Anaemia [Unknown]
  - Anxiety [Unknown]
  - Dehydration [Unknown]
  - Dry skin [Unknown]
  - Gastric polyps [Unknown]
  - Impaired healing [Unknown]
  - Hair colour changes [Unknown]
  - Hyperchlorhydria [Unknown]
  - Temperature regulation disorder [Unknown]
  - Nail disorder [Unknown]
  - Skin discolouration [Unknown]
  - Dental caries [Unknown]
  - Jaundice [Unknown]
  - Nausea [Unknown]
  - Photosensitivity reaction [Unknown]
  - Abdominal discomfort [Unknown]
  - Vomiting [Unknown]
  - Pyrexia [Unknown]
